FAERS Safety Report 4979558-X (Version None)
Quarter: 2006Q2

REPORT INFORMATION
  Report Type: 
  Country: None (occurrence: None)
  Receive Date: 20060418
  Receipt Date: 20060403
  Transmission Date: 20061013
  Serious: Yes (Hospitalization)
  Sender: FDA-Public Use
  Company Number: S06-FRA-01386-01

PATIENT
  Age: 73 Year
  Sex: Male

DRUGS (7)
  1. MEMANTINE HCL [Suspect]
     Indication: DEMENTIA ALZHEIMER'S TYPE
     Dosage: 10 MG BID PO
     Route: 048
  2. ARICEPT [Concomitant]
  3. SECTRAL [Concomitant]
  4. COVERSYL (PERINDOPRIL) [Concomitant]
  5. LASIX [Concomitant]
  6. CORVASAL (MOLSIDOMINE) [Concomitant]
  7. KARDEGIC (ACETYLSALICYLATE LYSINE) [Concomitant]

REACTIONS (3)
  - DEPRESSED LEVEL OF CONSCIOUSNESS [None]
  - FALL [None]
  - OVERDOSE [None]
